FAERS Safety Report 20162564 (Version 2)
Quarter: 2021Q4

REPORT INFORMATION
  Report Type: Spontaneous
  Country: None (occurrence: GB)
  Receive Date: 20211208
  Receipt Date: 20211216
  Transmission Date: 20220303
  Serious: Yes (Disabling, Other)
  Sender: FDA-Public Use
  Company Number: GB-Ascend Therapeutics US, LLC-2122821

PATIENT
  Age: 47 Year
  Sex: Female
  Weight: 51 kg

DRUGS (8)
  1. ESTROGEL [Suspect]
     Active Substance: ESTRADIOL
     Indication: Menopausal symptoms
     Route: 065
     Dates: start: 20211107
  2. ESTROGEL [Suspect]
     Active Substance: ESTRADIOL
  3. ESTRADIOL [Suspect]
     Active Substance: ESTRADIOL
     Route: 065
     Dates: start: 20211107
  4. MIDODRINE(MIDODRINE) [Concomitant]
     Route: 065
  5. NITROFURANTOIN(NITROFURANTOIN) [Concomitant]
     Route: 065
  6. PROPRANOLOL HYDROCHLORIDE(PROPRANOLOL HYDROCHLORIDE) [Concomitant]
     Route: 065
  7. TESTOGEL(TESTOSTERONE) [Concomitant]
     Route: 065
  8. UTROGESTAN(PROGESTERONE) [Concomitant]
     Route: 065

REACTIONS (12)
  - Drug ineffective [Not Recovered/Not Resolved]
  - Medication error [Unknown]
  - Fatigue [Unknown]
  - Feeling jittery [Unknown]
  - Palpitations [Unknown]
  - Anxiety [Unknown]
  - Vaginal haemorrhage [Unknown]
  - Hyperhidrosis [Unknown]
  - Feeling cold [Unknown]
  - Malaise [Unknown]
  - Dizziness [Unknown]
  - Product quality issue [Unknown]
